FAERS Safety Report 12670439 (Version 1)
Quarter: 2016Q3

REPORT INFORMATION
  Report Type: Spontaneous
  Country: JP (occurrence: JP)
  Receive Date: 20160822
  Receipt Date: 20160822
  Transmission Date: 20161109
  Serious: Yes (Hospitalization, Other)
  Sender: FDA-Public Use
  Company Number: JP-GLAXOSMITHKLINE-B0949238A

PATIENT
  Age: 31 Year
  Sex: Female

DRUGS (5)
  1. ETIZOLAM [Concomitant]
     Active Substance: ETIZOLAM
     Indication: BIPOLAR DISORDER
     Route: 048
     Dates: end: 20130414
  2. MIANSERIN HYDROCHLORIDE [Concomitant]
     Active Substance: MIANSERIN HYDROCHLORIDE
     Indication: BIPOLAR DISORDER
     Route: 048
     Dates: end: 20130414
  3. LAMOTRIGINE. [Suspect]
     Active Substance: LAMOTRIGINE
     Indication: BIPOLAR DISORDER
     Dosage: 25 MG, QD
     Route: 048
     Dates: start: 20130322, end: 20130414
  4. ETHYL LOFLAZEPATE [Concomitant]
     Active Substance: ETHYL LOFLAZEPATE
     Indication: BIPOLAR DISORDER
     Route: 048
     Dates: end: 20130414
  5. LORMETAZEPAM [Concomitant]
     Active Substance: LORMETAZEPAM
     Indication: BIPOLAR DISORDER
     Route: 048
     Dates: end: 20130414

REACTIONS (22)
  - Conjunctival hyperaemia [Unknown]
  - Eye discharge [Unknown]
  - Rash maculo-papular [Unknown]
  - Skin erosion [Unknown]
  - Erythema multiforme [Recovering/Resolving]
  - Pyrexia [Recovering/Resolving]
  - Lip erosion [Unknown]
  - Blister [Unknown]
  - Vulval disorder [Unknown]
  - Eye ulcer [Unknown]
  - Oral mucosa erosion [Unknown]
  - Vulvar erosion [Unknown]
  - Skin degenerative disorder [Unknown]
  - Epidermal necrosis [Unknown]
  - Enanthema [Recovering/Resolving]
  - Stevens-Johnson syndrome [Recovered/Resolved]
  - Scab [Unknown]
  - Generalised erythema [Unknown]
  - Erythema [Unknown]
  - Rash generalised [Recovering/Resolving]
  - Eyelid erosion [Unknown]
  - Lip blister [Unknown]

NARRATIVE: CASE EVENT DATE: 20130410
